FAERS Safety Report 21602022 (Version 1)
Quarter: 2022Q4

REPORT INFORMATION
  Report Type: Spontaneous
  Country: DE (occurrence: None)
  Receive Date: 20221116
  Receipt Date: 20221116
  Transmission Date: 20230112
  Serious: Yes (Other)
  Sender: FDA-Public Use
  Company Number: 2022A377541

PATIENT
  Age: 72 Year
  Sex: Male
  Weight: 92 kg

DRUGS (1)
  1. OMEPRAZOLE [Suspect]
     Active Substance: OMEPRAZOLE
     Indication: Gastrooesophageal reflux disease
     Dosage: LONG-TERM MEDICATION FOR DECADES
     Route: 048

REACTIONS (2)
  - Gastric mucosal hypertrophy [Not Recovered/Not Resolved]
  - Gastritis [Not Recovered/Not Resolved]
